FAERS Safety Report 5257761-1 (Version None)
Quarter: 2007Q1

REPORT INFORMATION
  Report Type: 
  Country: None (occurrence: None)
  Receive Date: 20070307
  Receipt Date: 20070223
  Transmission Date: 20070707
  Serious: Yes (Other)
  Sender: FDA-Public Use
  Company Number: PHBS2007BR03426

PATIENT
  Age: 29 Year
  Sex: Female
  Weight: 70 kg

DRUGS (2)
  1. METHERGINE [Suspect]
     Indication: CONTRACEPTION
     Dosage: 1 AMP A MONTH
     Route: 030
  2. METHERGINE [Suspect]
     Indication: HAEMORRHAGE
     Dosage: 0.125 MG, Q8H
     Route: 048
     Dates: start: 20070221, end: 20070221

REACTIONS (4)
  - DYSPNOEA [None]
  - FATIGUE [None]
  - FEELING ABNORMAL [None]
  - HAEMORRHAGE [None]
